FAERS Safety Report 12982941 (Version 1)
Quarter: 2016Q4

REPORT INFORMATION
  Report Type: Spontaneous
  Country: US (occurrence: US)
  Receive Date: 20161129
  Receipt Date: 20161129
  Transmission Date: 20170207
  Serious: No
  Sender: FDA-Public Use
  Company Number: US-MALLINCKRODT-T201600038

PATIENT
  Age: 67 Year
  Sex: Female
  Weight: 54 kg

DRUGS (4)
  1. FENTANYL. [Concomitant]
     Active Substance: FENTANYL
     Indication: PRODUCT USED FOR UNKNOWN INDICATION
     Dosage: 50 MCG/HR
     Route: 065
  2. SOMA [Concomitant]
     Active Substance: CARISOPRODOL
     Dosage: AT NIGHT
     Route: 065
  3. FENTANYL TRANSDERMAL SYSTEM [Suspect]
     Active Substance: FENTANYL
     Indication: PAIN
     Dosage: 25MCG Q72 HOURS
     Route: 062
     Dates: start: 201507
  4. LYRICA [Concomitant]
     Active Substance: PREGABALIN
     Dosage: 50-75MG (TOTAL DOSE DAILY)
     Route: 065

REACTIONS (1)
  - Drug effect increased [Recovering/Resolving]

NARRATIVE: CASE EVENT DATE: 20160105
